FAERS Safety Report 8042729-2 (Version None)
Quarter: 2012Q1

REPORT INFORMATION
  Report Type: 
  Country: None (occurrence: None)
  Receive Date: 20120112
  Receipt Date: 20120106
  Transmission Date: 20120608
  Serious: Yes (Hospitalization)
  Sender: FDA-Public Use
  Company Number: US-BAYER-2011-075140

PATIENT
  Age: 23 Year
  Sex: Female
  Weight: 50 kg

DRUGS (4)
  1. PROTONIX [Concomitant]
     Dosage: UNK
     Dates: start: 20050101, end: 20080101
  2. YAZ [Suspect]
     Dosage: UNK
     Dates: start: 20060101, end: 20080401
  3. YASMIN [Suspect]
     Dosage: UNK
     Dates: start: 20060101, end: 20080401
  4. DROSPIRENONE AND ETHINYL ESTRADIOL [Suspect]
     Dosage: UNK
     Dates: start: 20060101, end: 20080401

REACTIONS (3)
  - PAIN [None]
  - GALLBLADDER INJURY [None]
  - INJURY [None]
